FAERS Safety Report 4332990-X (Version None)
Quarter: 2004Q2

REPORT INFORMATION
  Report Type: 
  Country: None (occurrence: None)
  Receive Date: 20040401
  Receipt Date: 20040322
  Transmission Date: 20050107
  Serious: Yes (Other)
  Sender: FDA-Public Use
  Company Number: 200411383BCC

PATIENT
  Age: 84 Year
  Sex: Female
  Weight: 56.6996 kg

DRUGS (9)
  1. ALEVE (CAPLET) [Suspect]
     Indication: ARTHRALGIA
     Dosage: SEE IMAGE ORAL
     Route: 048
     Dates: start: 20040318, end: 20040321
  2. ALEVE (CAPLET) [Suspect]
     Indication: ARTHRALGIA
     Dosage: SEE IMAGE ORAL
     Route: 048
     Dates: start: 20040317
  3. ALEVE (CAPLET) [Suspect]
     Indication: ARTHRALGIA
     Dosage: SEE IMAGE ORAL
     Route: 048
     Dates: start: 20040322
  4. DYAZIDE [Concomitant]
  5. MONOPRIL [Concomitant]
  6. ZOCOR [Concomitant]
  7. ST. JOSEPH ASPIRIN [Concomitant]
  8. . [Concomitant]
  9. . [Concomitant]

REACTIONS (1)
  - BLOOD PRESSURE SYSTOLIC INCREASED [None]
